FAERS Safety Report 7658606-2 (Version None)
Quarter: 2011Q3

REPORT INFORMATION
  Report Type: 
  Country: None (occurrence: None)
  Receive Date: 20110804
  Receipt Date: 20110804
  Transmission Date: 20111222
  Serious: Yes (Life-Threatening, Hospitalization, Disabling, Other)
  Sender: FDA-Public Use
  Company Number: None

PATIENT
  Sex: Male
  Weight: 102.0593 kg

DRUGS (2)
  1. PROPOXYPHENE HCL AND ACETAMINOPHEN [Suspect]
     Indication: PAIN IN EXTREMITY
     Dosage: 650 MG 2X A DAY MOUTH
     Route: 048
  2. DARVOCET-N 100 [Suspect]

REACTIONS (3)
  - DIZZINESS [None]
  - CARDIOTOXICITY [None]
  - EXTRASYSTOLES [None]
